FAERS Safety Report 17349247 (Version 1)
Quarter: 2020Q1

REPORT INFORMATION
  Report Type: Spontaneous
  Country: US (occurrence: US)
  Receive Date: 20200129
  Receipt Date: 20200129
  Transmission Date: 20200409
  Serious: Yes (Hospitalization)
  Sender: FDA-Public Use
  Company Number: None

PATIENT
  Age: 75 Year
  Sex: Male
  Weight: 84.1 kg

DRUGS (3)
  1. IPILIMUMAB [Concomitant]
     Active Substance: IPILIMUMAB
     Dates: start: 20190905, end: 20191106
  2. NIVOLUMAB [Suspect]
     Active Substance: NIVOLUMAB
     Indication: METASTATIC SQUAMOUS CELL CARCINOMA
     Dosage: ?          OTHER FREQUENCY:3 WEEKS;?
     Route: 041
     Dates: start: 20190905, end: 20191106
  3. NIVOLUMAB [Suspect]
     Active Substance: NIVOLUMAB
     Indication: BASOSQUAMOUS CARCINOMA
     Dosage: ?          OTHER FREQUENCY:3 WEEKS;?
     Route: 041
     Dates: start: 20190905, end: 20191106

REACTIONS (7)
  - Chest pain [None]
  - Drug intolerance [None]
  - Pain in extremity [None]
  - Pruritus [None]
  - Drug hypersensitivity [None]
  - Back pain [None]
  - Muscle spasms [None]

NARRATIVE: CASE EVENT DATE: 20191106
